FAERS Safety Report 4543610-3 (Version None)
Quarter: 2005Q1

REPORT INFORMATION
  Report Type: 
  Country: None (occurrence: None)
  Receive Date: 20050103
  Receipt Date: 20041210
  Transmission Date: 20050727
  Serious: Yes (Hospitalization)
  Sender: FDA-Public Use
  Company Number: PO0400333-1

PATIENT
  Age: 26 Year
  Sex: Male

DRUGS (2)
  1. NABUCOX [Suspect]
     Indication: DRUG USE FOR UNKNOWN INDICATION
     Dates: start: 20040901
  2. ISOTRETINOINE [Suspect]
     Indication: DRUG USE FOR UNKNOWN INDICATION
     Route: 048
     Dates: start: 20040615

REACTIONS (3)
  - ARTHRALGIA [None]
  - ERYTHEMA NODOSUM [None]
  - PYREXIA [None]
